FAERS Safety Report 8209350-4 (Version None)
Quarter: 2012Q1

REPORT INFORMATION
  Report Type: 
  Country: None (occurrence: None)
  Receive Date: 20120314
  Receipt Date: 20120305
  Transmission Date: 20120608
  Serious: Yes (Death, Life-Threatening)
  Sender: FDA-Public Use
  Company Number: DE-TEVA-325930GER

PATIENT
  Age: 70 Year
  Sex: Male

DRUGS (12)
  1. AMLODIPINE [Suspect]
     Route: 048
     Dates: end: 20111121
  2. MIRTAZAPINE [Suspect]
     Route: 048
     Dates: end: 20111117
  3. MIRTAZAPINE [Suspect]
     Route: 048
     Dates: start: 20111118, end: 20111121
  4. RISPERDAL [Suspect]
     Route: 048
     Dates: end: 20111117
  5. RISPERDAL [Suspect]
     Route: 048
     Dates: start: 20111118, end: 20111121
  6. MELPERONE [Suspect]
     Route: 048
     Dates: end: 20111117
  7. DOMINAL [Suspect]
     Route: 048
     Dates: start: 20111120, end: 20111120
  8. TILIDINE W/NALOXONE [Suspect]
     Route: 048
     Dates: end: 20111121
  9. PANTOPRAZOLE [Concomitant]
     Route: 048
     Dates: start: 20111118, end: 20111121
  10. METFORMIN HCL [Concomitant]
     Route: 048
     Dates: end: 20111121
  11. JONOSTERIL [Concomitant]
     Route: 042
     Dates: start: 20111121, end: 20111121
  12. IBUPROFEN [Concomitant]
     Route: 048
     Dates: end: 20111121

REACTIONS (2)
  - PNEUMONIA [None]
  - HALLUCINATION, VISUAL [None]
